FAERS Safety Report 8360175-9 (Version None)
Quarter: 2012Q2

REPORT INFORMATION
  Report Type: 
  Country: None (occurrence: None)
  Receive Date: 20120515
  Receipt Date: 20110621
  Transmission Date: 20120825
  Serious: No
  Sender: FDA-Public Use
  Company Number: US-ALEXION-A201100927

PATIENT
  Sex: Male

DRUGS (10)
  1. ASPIRIN [Concomitant]
     Dosage: UNK, QOD
  2. ZOCOR [Concomitant]
     Dosage: UNK
  3. SOLIRIS [Suspect]
     Indication: PAROXYSMAL NOCTURNAL HAEMOGLOBINURIA
     Dosage: UNK
     Route: 042
     Dates: start: 20110922
  4. PREDNISONE [Concomitant]
     Dosage: 30 MG, QD
     Dates: end: 20110815
  5. PREDNISONE [Concomitant]
     Dosage: 20 MG, QD
     Dates: start: 20110816
  6. FOLIC ACID [Concomitant]
     Dosage: 1 MG, QD
  7. PLAVIX [Concomitant]
     Dosage: 75 MG, QOD
  8. COREG [Concomitant]
     Indication: AORTIC VALVE REPLACEMENT
     Dosage: 3.125 MG, BID
  9. ANAGRELIDE HCL [Concomitant]
     Indication: PLATELET DISORDER
     Dosage: UNK, 5 DAYS/WK
  10. TAMSULOSIN HCL [Concomitant]
     Dosage: 4 MG, QD

REACTIONS (6)
  - HAEMOGLOBIN DECREASED [None]
  - COUGH [None]
  - BLOOD PRESSURE FLUCTUATION [None]
  - LUNG INFECTION [None]
  - OXYGEN SATURATION DECREASED [None]
  - HEART RATE IRREGULAR [None]
